FAERS Safety Report 5230256-7 (Version None)
Quarter: 2007Q1

REPORT INFORMATION
  Report Type: 
  Country: None (occurrence: None)
  Receive Date: 20070206
  Receipt Date: 20061128
  Transmission Date: 20070707
  Serious: No
  Sender: FDA-Public Use
  Company Number: US-GLAXOSMITHKLINE-A0624930A

PATIENT
  Age: 61 Year
  Sex: Female
  Weight: 90.9 kg

DRUGS (3)
  1. PAXIL CR [Suspect]
     Dosage: 37.5MG PER DAY
     Route: 048
     Dates: start: 20020101
  2. PREMARIN [Concomitant]
  3. BUSPAR [Concomitant]

REACTIONS (4)
  - ANXIETY [None]
  - DIARRHOEA [None]
  - INSOMNIA [None]
  - PHARMACEUTICAL PRODUCT COMPLAINT [None]
